FAERS Safety Report 4263027-9 (Version None)
Quarter: 2004Q1

REPORT INFORMATION
  Report Type: 
  Country: None (occurrence: None)
  Receive Date: 20040102
  Receipt Date: 20040102
  Transmission Date: 20041129
  Serious: No
  Sender: FDA-Public Use
  Company Number: None

PATIENT
  Age: 44 Year
  Sex: Male
  Weight: 86.1834 kg

DRUGS (2)
  1. LOSARTAN 50 MG MSD [Suspect]
     Indication: HYPERTENSION
     Dosage: 50 MG QD ORAL
     Route: 048
  2. LOXAPINE [Suspect]
     Dosage: 50 MG QD ORAL
     Route: 048

REACTIONS (1)
  - MEDICATION ERROR [None]
